FAERS Safety Report 5083568-4 (Version None)
Quarter: 2006Q3

REPORT INFORMATION
  Report Type: 
  Country: None (occurrence: None)
  Receive Date: 20060814
  Receipt Date: 20060802
  Transmission Date: 20061208
  Serious: Yes (Hospitalization)
  Sender: FDA-Public Use
  Company Number: 2006040902

PATIENT
  Age: 79 Year
  Sex: Male

DRUGS (11)
  1. DELTACORTRIL [Suspect]
     Indication: DRUG USE FOR UNKNOWN INDICATION
     Dosage: 15 MG (15 MG, 1 IN 1 D), ORAL
     Route: 048
  2. ASPIRIN [Suspect]
     Indication: DRUG USE FOR UNKNOWN INDICATION
     Dates: start: 20060204, end: 20060207
  3. ENBREL [Suspect]
     Indication: RHEUMATOID ARTHRITIS
     Dosage: 50 MG (50 MG, 1 IN 1 D), SUBCUTANEOUS
     Route: 058
     Dates: start: 20051206, end: 20060128
  4. ARAVA [Suspect]
     Indication: DRUG USE FOR UNKNOWN INDICATION
     Dosage: 20 MG (20 MG, 1 IN 1 D), ORAL
     Route: 048
  5. WARFARIN SODIUM [Suspect]
     Indication: DRUG USE FOR UNKNOWN INDICATION
  6. DILTIAZEM HYDROCHLORIDE [Concomitant]
  7. FOSAMAX [Concomitant]
  8. CALCICHEW-D3 (CALCIUM CARBONATE, COLECALCIFEROL) [Concomitant]
  9. NEXIUM [Concomitant]
  10. DICLOFENAC SODIUM [Concomitant]
  11. FUROSEMIDE [Concomitant]

REACTIONS (3)
  - CARDIAC FAILURE [None]
  - CEREBROVASCULAR DISORDER [None]
  - PNEUMONIA [None]
